FAERS Safety Report 8191982-3 (Version None)
Quarter: 2012Q1

REPORT INFORMATION
  Report Type: 
  Country: None (occurrence: None)
  Receive Date: 20120307
  Receipt Date: 20120302
  Transmission Date: 20120608
  Serious: Yes (Death, Hospitalization, Other)
  Sender: FDA-Public Use
  Company Number: PHEH2008US02539

PATIENT
  Sex: Male

DRUGS (18)
  1. COMBIVENT [Concomitant]
  2. ZOMETA [Suspect]
  3. DEXAMETHASONE [Concomitant]
  4. CHEMOTHERAPEUTICS [Concomitant]
  5. FORADIL [Concomitant]
  6. MONTELUKAST SODIUM [Concomitant]
  7. FUROSEMIDE [Concomitant]
  8. ADRIAMYCIN PFS [Concomitant]
  9. COREG [Concomitant]
  10. VINCRISTINE [Concomitant]
  11. AMOXICILLIN [Concomitant]
  12. LASIX [Concomitant]
  13. LISINOPRIL [Concomitant]
  14. AREDIA [Suspect]
     Dosage: 90 MG,
  15. DUONEB [Concomitant]
  16. DIGOXIN [Concomitant]
  17. PREDNISONE [Concomitant]
  18. PROTONIX [Concomitant]

REACTIONS (64)
  - GINGIVAL RECESSION [None]
  - PULMONARY HYPERTENSION [None]
  - TRICUSPID VALVE INCOMPETENCE [None]
  - BUNDLE BRANCH BLOCK RIGHT [None]
  - CARDIOMEGALY [None]
  - MALAISE [None]
  - WEIGHT DECREASED [None]
  - PAIN IN JAW [None]
  - EMOTIONAL DISTRESS [None]
  - RENAL FAILURE ACUTE [None]
  - MITRAL VALVE INCOMPETENCE [None]
  - CARDIAC MURMUR [None]
  - HYPOACUSIS [None]
  - SPINAL OSTEOARTHRITIS [None]
  - FATIGUE [None]
  - PNEUMONIA [None]
  - AORTIC VALVE INCOMPETENCE [None]
  - OEDEMA PERIPHERAL [None]
  - PLEURAL FIBROSIS [None]
  - HEPATIC CONGESTION [None]
  - RESPIRATORY DISTRESS [None]
  - OVERDOSE [None]
  - INFECTION [None]
  - PHYSICAL DISABILITY [None]
  - OSTEOPOROSIS [None]
  - CARDIAC FAILURE CONGESTIVE [None]
  - RENAL FAILURE [None]
  - DILATATION VENTRICULAR [None]
  - LEFT VENTRICULAR DYSFUNCTION [None]
  - VENTRICULAR EXTRASYSTOLES [None]
  - RIB FRACTURE [None]
  - HYPERCALCAEMIA [None]
  - INSOMNIA [None]
  - URINARY RETENTION [None]
  - RENAL CYST [None]
  - MUSCULAR WEAKNESS [None]
  - DISCOMFORT [None]
  - ANXIETY [None]
  - ANHEDONIA [None]
  - RENAL FAILURE CHRONIC [None]
  - SINUS TACHYCARDIA [None]
  - MYOCARDIAL INFARCTION [None]
  - OSTEOPENIA [None]
  - ASPERGILLOSIS [None]
  - LETHARGY [None]
  - OSTEONECROSIS OF JAW [None]
  - DENTAL CARIES [None]
  - MASTICATION DISORDER [None]
  - JAW DISORDER [None]
  - CONJUNCTIVAL ABRASION [None]
  - DEPRESSION [None]
  - DECREASED APPETITE [None]
  - PAIN [None]
  - TOOTH LOSS [None]
  - INJURY [None]
  - EXPOSED BONE IN JAW [None]
  - DYSPNOEA [None]
  - CHRONIC OBSTRUCTIVE PULMONARY DISEASE [None]
  - DEFORMITY [None]
  - TOOTH DISORDER [None]
  - HYPOPHAGIA [None]
  - GENERAL PHYSICAL HEALTH DETERIORATION [None]
  - CARDIOMYOPATHY [None]
  - EMPHYSEMA [None]
